FAERS Safety Report 11866151 (Version 1)
Quarter: 2015Q4

REPORT INFORMATION
  Report Type: Report from Study
  Country: US (occurrence: US)
  Receive Date: 20151223
  Receipt Date: 20151223
  Transmission Date: 20160305
  Serious: No
  Sender: FDA-Public Use
  Company Number: US-EXELIXIS-CABO-15005746

PATIENT
  Sex: Female
  Weight: 79.38 kg

DRUGS (8)
  1. COMETRIQ [Suspect]
     Active Substance: CABOZANTINIB S-MALATE
     Dosage: 60 MG, QD
     Route: 048
     Dates: start: 20151016, end: 2015
  2. SYNTHROID [Concomitant]
     Active Substance: LEVOTHYROXINE SODIUM
  3. COMETRIQ [Suspect]
     Active Substance: CABOZANTINIB S-MALATE
     Indication: THYROID CANCER
     Dosage: 100 MG, QD
     Route: 048
     Dates: start: 20150905, end: 20151008
  4. FENTANYL. [Concomitant]
     Active Substance: FENTANYL
  5. COMETRIQ [Suspect]
     Active Substance: CABOZANTINIB S-MALATE
     Dosage: 100 MG, QD
     Route: 048
     Dates: start: 201510
  6. WELLBUTRIN [Concomitant]
     Active Substance: BUPROPION HYDROCHLORIDE
  7. XANAX [Concomitant]
     Active Substance: ALPRAZOLAM
  8. TOPAMAX [Concomitant]
     Active Substance: TOPIRAMATE

REACTIONS (6)
  - Glossodynia [Unknown]
  - Oropharyngeal pain [Unknown]
  - Dysgeusia [Unknown]
  - Memory impairment [Unknown]
  - Gingival bleeding [Unknown]
  - Diarrhoea [Unknown]
